FAERS Safety Report 17406860 (Version 1)
Quarter: 2020Q1

REPORT INFORMATION
  Report Type: Spontaneous
  Country: US (occurrence: US)
  Receive Date: 20200211
  Receipt Date: 20200211
  Transmission Date: 20200409
  Serious: Yes (Life-Threatening)
  Sender: FDA-Public Use
  Company Number: None

PATIENT
  Age: 48 Year
  Sex: Female

DRUGS (2)
  1. TOCILIZUMAB. [Suspect]
     Active Substance: TOCILIZUMAB
  2. TISAGENLECLEUCEL. [Suspect]
     Active Substance: TISAGENLECLEUCEL

REACTIONS (16)
  - Staphylococcal bacteraemia [None]
  - Cytokine release syndrome [None]
  - Somnolence [None]
  - Lymphadenopathy [None]
  - Pyrexia [None]
  - Mental status changes [None]
  - Neurotoxicity [None]
  - Diarrhoea [None]
  - Lethargy [None]
  - Aphasia [None]
  - Hypotension [None]
  - Tremor [None]
  - Subdural haematoma [None]
  - Subarachnoid haemorrhage [None]
  - Neutropenia [None]
  - Diffuse large B-cell lymphoma recurrent [None]

NARRATIVE: CASE EVENT DATE: 20191219
